FAERS Safety Report 5073042-3 (Version None)
Quarter: 2006Q3

REPORT INFORMATION
  Report Type: 
  Country: None (occurrence: None)
  Receive Date: 20060802
  Receipt Date: 20060720
  Transmission Date: 20061208
  Serious: Yes (Hospitalization)
  Sender: FDA-Public Use
  Company Number: 2005004119

PATIENT
  Age: 30 Year
  Sex: Female

DRUGS (1)
  1. LITHIUM (LITHIUM) [Suspect]
     Indication: BIPOLAR DISORDER
     Dates: start: 20010901

REACTIONS (6)
  - AUTOIMMUNE THYROIDITIS [None]
  - DISEASE RECURRENCE [None]
  - FIBROSIS [None]
  - HYPOTHYROIDISM [None]
  - MANIA [None]
  - TREATMENT NONCOMPLIANCE [None]
